FAERS Safety Report 25214392 (Version 2)
Quarter: 2025Q2

REPORT INFORMATION
  Report Type: Spontaneous
  Country: US (occurrence: US)
  Receive Date: 20250418
  Receipt Date: 20250519
  Transmission Date: 20250717
  Serious: No
  Sender: PFIZER
  Company Number: US-PFIZER INC-PV202500046114

PATIENT
  Sex: Female

DRUGS (2)
  1. TIVDAK [Suspect]
     Active Substance: TISOTUMAB VEDOTIN-TFTV
  2. TIVDAK [Suspect]
     Active Substance: TISOTUMAB VEDOTIN-TFTV

REACTIONS (1)
  - Conjunctival scar [Unknown]
